FAERS Safety Report 4360300-0 (Version None)
Quarter: 2004Q2

REPORT INFORMATION
  Report Type: 
  Country: None (occurrence: None)
  Receive Date: 20040519
  Receipt Date: 20040510
  Transmission Date: 20050107
  Serious: Yes (Hospitalization)
  Sender: FDA-Public Use
  Company Number: CL-JNJFOC-20040502246

PATIENT
  Age: 46 Year
  Sex: Female
  Weight: 54 kg

DRUGS (6)
  1. INFLIXIMAB [Suspect]
     Route: 042
  2. INFLIXIMAB [Suspect]
     Route: 042
  3. SALOFALK [Concomitant]
     Route: 049
  4. STEROIDS [Concomitant]
  5. FLAGYL [Concomitant]
  6. CEPHALOSPORINE [Concomitant]
     Route: 042

REACTIONS (2)
  - PARAESTHESIA [None]
  - SENSORIMOTOR DISORDER [None]
